FAERS Safety Report 5179363-8 (Version None)
Quarter: 2006Q4

REPORT INFORMATION
  Report Type: 
  Country: None (occurrence: None)
  Receive Date: 20061219
  Receipt Date: 20061025
  Transmission Date: 20070319
  Serious: Yes (Hospitalization, Other)
  Sender: FDA-Public Use
  Company Number: US-SANOFI-SYNTHELABO-F03200600231

PATIENT
  Age: 65 Year
  Sex: Male

DRUGS (10)
  1. BEVACIZUMAB [Suspect]
     Indication: METASTATIC GASTRIC CANCER
     Dosage: 100 MG EVERY 3 WEEKS
     Route: 042
     Dates: start: 20060921, end: 20060923
  2. ATENOLOL [Concomitant]
     Dosage: UNK
     Route: 048
     Dates: start: 20060309
  3. VITAMIN CAP [Concomitant]
     Dosage: UNK
     Route: 048
     Dates: start: 20060309
  4. XANAX [Concomitant]
     Dosage: UNK
     Route: 048
  5. PREVACID [Concomitant]
     Dosage: UNK
     Route: 048
  6. DOXAZOSIN MESYLATE [Concomitant]
     Dosage: UNK
     Route: 048
  7. OTERACIL POTASSIUM [Suspect]
     Indication: METASTATIC GASTRIC CANCER
     Dosage: UNK
     Route: 048
     Dates: start: 20060921, end: 20060923
  8. GIMERACIL [Suspect]
     Indication: METASTATIC GASTRIC CANCER
     Dosage: UNK
     Route: 048
     Dates: start: 20060921, end: 20060923
  9. TEGAFUR [Suspect]
     Indication: METASTATIC GASTRIC CANCER
     Route: 048
     Dates: start: 20060921, end: 20060923
  10. OXALIPLATIN [Suspect]
     Indication: METASTATIC GASTRIC CANCER
     Dosage: UNK
     Route: 042
     Dates: start: 20060921, end: 20060923

REACTIONS (4)
  - CONVULSION [None]
  - NAUSEA [None]
  - REVERSIBLE POSTERIOR LEUKOENCEPHALOPATHY SYNDROME [None]
  - VOMITING [None]
